FAERS Safety Report 23616976 (Version 1)
Quarter: 2024Q1

REPORT INFORMATION
  Report Type: Spontaneous
  Country: ES (occurrence: ES)
  Receive Date: 20240311
  Receipt Date: 20240311
  Transmission Date: 20240409
  Serious: Yes (Hospitalization, Other)
  Sender: FDA-Public Use
  Company Number: None

PATIENT
  Age: 68 Year
  Sex: Male
  Weight: 85 kg

DRUGS (7)
  1. VORICONAZOLE [Suspect]
     Active Substance: VORICONAZOLE
     Indication: Bronchopulmonary aspergillosis
     Dosage: VORICONAZOL (2878A)
     Route: 065
     Dates: start: 20230908, end: 20230918
  2. AMOXICILLIN\CLAVULANIC ACID [Suspect]
     Active Substance: AMOXICILLIN\CLAVULANIC ACID
     Indication: Pneumonia
     Dosage: AMOXICILLIN/CLAVULANIC ACID 1,000 MG/200 MG INJECTION
     Route: 042
     Dates: start: 20230826, end: 20230901
  3. PIPERACILLIN SODIUM\TAZOBACTAM SODIUM [Suspect]
     Active Substance: PIPERACILLIN SODIUM\TAZOBACTAM SODIUM
     Indication: Pneumonia
     Dosage: PIPERACILLIN/TAZOBACTAM 4,000 MG/500 MG INJECTION
     Route: 042
     Dates: start: 20230831, end: 20231109
  4. TOBRAMYCIN [Suspect]
     Active Substance: TOBRAMYCIN
     Indication: Pneumonia
     Dosage: TOBRAMICINA (3141A)
     Route: 042
     Dates: start: 20230905, end: 20230914
  5. MEROPENEM [Suspect]
     Active Substance: MEROPENEM
     Indication: Pneumonia
     Dosage: MEROPENEM (7155A)
     Route: 042
     Dates: start: 20230905, end: 20230914
  6. LEVOFLOXACIN [Suspect]
     Active Substance: LEVOFLOXACIN
     Indication: Pneumonia
     Dosage: LEVOFLOXACINO (2791A)
     Route: 048
     Dates: start: 20230831, end: 20230901
  7. LINEZOLID [Suspect]
     Active Substance: LINEZOLID
     Indication: Pneumonia
     Dosage: LINEZOLID (1279A)
     Route: 042
     Dates: start: 20230902, end: 20230911

REACTIONS (2)
  - Hepatocellular injury [Not Recovered/Not Resolved]
  - Hallucination, visual [Recovered/Resolved]

NARRATIVE: CASE EVENT DATE: 20230913
